FAERS Safety Report 5879326-0 (Version None)
Quarter: 2008Q3

REPORT INFORMATION
  Report Type: 
  Country: None (occurrence: None)
  Receive Date: 20080912
  Receipt Date: 20080901
  Transmission Date: 20090109
  Serious: No
  Sender: FDA-Public Use
  Company Number: CA-PFIZER INC-2008063933

PATIENT
  Age: 63 Year
  Sex: Female
  Weight: 67 kg

DRUGS (1)
  1. SU-011,248 [Suspect]
     Indication: ENDOMETRIAL CANCER
     Route: 048
     Dates: start: 20080225, end: 20080504

REACTIONS (6)
  - BLOOD POTASSIUM DECREASED [None]
  - GASTROINTESTINAL FISTULA [None]
  - HAEMOGLOBIN ABNORMAL [None]
  - NO ADVERSE EVENT [None]
  - PLATELET COUNT ABNORMAL [None]
  - SMALL INTESTINAL OBSTRUCTION [None]
